FAERS Safety Report 18271352 (Version 2)
Quarter: 2021Q1

REPORT INFORMATION
  Report Type: Report from Study
  Country: None (occurrence: US)
  Receive Date: 20200915
  Receipt Date: 20210324
  Transmission Date: 20210419
  Serious: Yes (Other)
  Sender: FDA-Public Use
  Company Number: US-ABBVIE-19K-163-2931804-00

PATIENT
  Age: 65 Year
  Sex: Female
  Weight: 124.85 kg

DRUGS (3)
  1. HUMIRA [Suspect]
     Active Substance: ADALIMUMAB
     Indication: RHEUMATOID ARTHRITIS
     Dosage: CITRATE FREE
     Route: 058
     Dates: start: 2012
  2. METHOTREXATE. [Concomitant]
     Active Substance: METHOTREXATE
     Indication: PRODUCT USED FOR UNKNOWN INDICATION
  3. HUMIRA [Suspect]
     Active Substance: ADALIMUMAB
     Indication: RHEUMATOID ARTHRITIS
     Route: 058
     Dates: end: 2020

REACTIONS (15)
  - Spinal stenosis [Unknown]
  - Pulmonary thrombosis [Recovered/Resolved]
  - Muscle spasms [Recovered/Resolved]
  - Muscle spasms [Recovered/Resolved]
  - COVID-19 [Recovered/Resolved]
  - Flatulence [Recovering/Resolving]
  - Flatulence [Recovered/Resolved]
  - Injection site bruising [Recovered/Resolved]
  - Abdominal pain upper [Recovering/Resolving]
  - Spondylitis [Unknown]
  - Back pain [Not Recovered/Not Resolved]
  - Pneumonia [Recovered/Resolved]
  - Weight increased [Unknown]
  - Injection site pain [Unknown]
  - Abdominal pain upper [Recovered/Resolved]

NARRATIVE: CASE EVENT DATE: 202001
